FAERS Safety Report 4328752-X (Version None)
Quarter: 2004Q1

REPORT INFORMATION
  Report Type: 
  Country: None (occurrence: None)
  Receive Date: 20040329
  Receipt Date: 20040212
  Transmission Date: 20041129
  Serious: Yes (Hospitalization)
  Sender: FDA-Public Use
  Company Number: 04P-163-0248590-00

PATIENT
  Age: 76 Year
  Sex: Male
  Weight: 83.4619 kg

DRUGS (8)
  1. HUMIRA [Suspect]
     Indication: RHEUMATOID ARTHRITIS
     Dosage: 40 MG, 1 IN 2 WK, SUBCUTANEOUS
     Route: 058
     Dates: start: 20031106
  2. HUMIRA [Suspect]
     Indication: RHEUMATOID ARTHRITIS
     Dosage: 40 MG, 1 IN 2 WK, SUBCUTANEOUS
     Route: 058
     Dates: start: 20031127
  3. PREDNISONE [Concomitant]
  4. DILTIAZEM [Concomitant]
  5. BUMETANIDE [Concomitant]
  6. POTASSIUM [Concomitant]
  7. INSULIN NORDISK MIXTARD (PORK) [Concomitant]
  8. GABAPENTIN [Concomitant]

REACTIONS (1)
  - PNEUMONIA [None]
